FAERS Safety Report 7771517-7 (Version None)
Quarter: 2011Q3

REPORT INFORMATION
  Report Type: 
  Country: None (occurrence: None)
  Receive Date: 20110922
  Receipt Date: 20110913
  Transmission Date: 20111222
  Serious: No
  Sender: FDA-Public Use
  Company Number: US-B.I. PHARMACEUTICALS,INC./RIDGEFIELD-2011-BP-20123BP

PATIENT
  Sex: Male

DRUGS (13)
  1. ATENOLOL [Concomitant]
  2. ASPIRIN [Concomitant]
  3. CYMBALTA [Concomitant]
  4. FERROUS SULFATE TAB [Concomitant]
     Dosage: 5 G
  5. ALPHA LIPOIC ACID [Concomitant]
     Dosage: 200 MG
  6. PROTONIX [Concomitant]
  7. L-CARNITINE [Concomitant]
     Dosage: 400 MG
  8. COZAAR [Concomitant]
  9. ALLOPURINOL [Concomitant]
  10. ISOSORBIDE DINITRATE [Concomitant]
  11. CO Q-10 [Concomitant]
     Dosage: 100 MG
  12. PRADAXA [Suspect]
     Dosage: 300 MG
     Route: 048
     Dates: start: 20110802
  13. ANTIOXIDANTS [Concomitant]
     Dosage: 5 G

REACTIONS (3)
  - EPISTAXIS [None]
  - HEADACHE [None]
  - ANORECTAL DISCOMFORT [None]
